FAERS Safety Report 10393790 (Version 1)
Quarter: 2014Q3

REPORT INFORMATION
  Report Type: Spontaneous
  Country: DK (occurrence: None)
  Receive Date: 20140815
  Receipt Date: 20140815
  Transmission Date: 20150326
  Serious: Yes (Other)
  Sender: FDA-Public Use
  Company Number: 2014DK01021

PATIENT

DRUGS (1)
  1. TENOFOVIR/LAMIVUDINE/EFAVIRENZ TABLET [Suspect]
     Active Substance: EFAVIRENZ\LAMIVUDINE\TENOFOVIR

REACTIONS (1)
  - Drug resistance [None]
